FAERS Safety Report 21830442 (Version 1)
Quarter: 2023Q1

REPORT INFORMATION
  Report Type: Spontaneous
  Country: US (occurrence: None)
  Receive Date: 20230105
  Receipt Date: 20230105
  Transmission Date: 20230417
  Serious: No
  Sender: FDA-Public Use
  Company Number: None

PATIENT
  Age: 64 Year
  Sex: Female
  Weight: 98.7 kg

DRUGS (18)
  1. CAPECITABINE [Suspect]
     Active Substance: CAPECITABINE
     Indication: Colon cancer
     Dosage: OTHER FREQUENCY : 2W, 1W OFF;?
     Route: 048
  2. CAPECITABINE [Suspect]
     Active Substance: CAPECITABINE
     Indication: Colon cancer
     Dosage: OTHER FREQUENCY : 2W, 1W OFF;?
     Route: 048
  3. BENADRYL [Concomitant]
     Active Substance: DIPHENHYDRAMINE HYDROCHLORIDE
  4. CALCIUM CARBONATE\VITAMIN D [Concomitant]
     Active Substance: CALCIUM CARBONATE\VITAMIN D
  5. MELATONIN [Concomitant]
     Active Substance: MELATONIN
  6. DECADRON [Concomitant]
     Active Substance: DEXAMETHASONE
  7. DIPHENHYDRAMINE [Concomitant]
     Active Substance: DIPHENHYDRAMINE
  8. EPINEPHRINE [Concomitant]
     Active Substance: EPINEPHRINE
  9. LEVOTHYROXINE [Concomitant]
     Active Substance: LEVOTHYROXINE
  10. LOMOTIL [Concomitant]
     Active Substance: ATROPINE SULFATE\DIPHENOXYLATE HYDROCHLORIDE
  11. LOPERAMIDE [Concomitant]
     Active Substance: LOPERAMIDE
  12. METHOCARBAMOL [Concomitant]
     Active Substance: METHOCARBAMOL
  13. NYSTATIN [Concomitant]
     Active Substance: NYSTATIN
  14. POTASSIUM CHLORIDE [Concomitant]
     Active Substance: POTASSIUM CHLORIDE
  15. PREDNISONE [Concomitant]
     Active Substance: PREDNISONE
  16. TYLENOL [Concomitant]
     Active Substance: ACETAMINOPHEN
  17. ZOFRAN [Concomitant]
     Active Substance: ONDANSETRON HYDROCHLORIDE
  18. ZOLPIDEM [Concomitant]
     Active Substance: ZOLPIDEM TARTRATE

REACTIONS (1)
  - Platelet count decreased [None]
